FAERS Safety Report 8451147-4 (Version None)
Quarter: 2012Q2

REPORT INFORMATION
  Report Type: 
  Country: None (occurrence: None)
  Receive Date: 20120620
  Receipt Date: 20120611
  Transmission Date: 20120825
  Serious: Yes (Death, Life-Threatening, Other)
  Sender: FDA-Public Use
  Company Number: US-PFIZER INC-2003038432

PATIENT
  Sex: Female

DRUGS (21)
  1. LEVOTHYROXINE SODIUM [Concomitant]
     Route: 065
  2. TUSSIONEX ^PENNWALT^ [Concomitant]
     Route: 065
  3. VISTARIL [Interacting]
     Indication: ILL-DEFINED DISORDER
     Route: 065
  4. WARFARIN SODIUM [Concomitant]
     Route: 065
  5. ACETYLSALICYLIC ACID SRT [Concomitant]
     Route: 065
  6. FUROSEMIDE [Concomitant]
     Route: 065
  7. BENADRYL [Interacting]
     Indication: ILL-DEFINED DISORDER
     Route: 065
  8. LORAZEPAM [Concomitant]
     Route: 065
  9. SERETIDE MITE [Concomitant]
     Route: 065
  10. DOCUSATE SODIUM [Concomitant]
     Route: 065
  11. SPIRONOLACTONE [Concomitant]
     Route: 065
  12. ZOLOFT [Interacting]
     Indication: ILL-DEFINED DISORDER
     Route: 065
  13. GLYBURIDE [Interacting]
     Indication: ILL-DEFINED DISORDER
     Route: 065
  14. NYSTATIN [Concomitant]
     Route: 065
  15. DEXAMETHASONE ACETATE [Concomitant]
     Route: 065
  16. AMIODARONE HCL [Interacting]
     Indication: ILL-DEFINED DISORDER
     Route: 065
  17. METOLAZONE [Concomitant]
     Route: 065
  18. ZOLPIDEM TARTRATE [Concomitant]
     Route: 065
  19. ZITHROMAX [Suspect]
     Indication: ILL-DEFINED DISORDER
     Route: 065
  20. ZAFIRLUKAST [Concomitant]
     Route: 065
  21. LOSARTAN POTASSIUM [Concomitant]
     Route: 065

REACTIONS (3)
  - ISCHAEMIC CARDIOMYOPATHY [None]
  - DRUG INTERACTION [None]
  - HYPERSENSITIVITY [None]
